FAERS Safety Report 9991579 (Version 1)
Quarter: 2014Q1

REPORT INFORMATION
  Report Type: Spontaneous
  Country: US (occurrence: US)
  Receive Date: 20140310
  Receipt Date: 20140310
  Transmission Date: 20141002
  Serious: Yes (Other)
  Sender: FDA-Public Use
  Company Number: US-BAYER-2014-032196

PATIENT
  Age: 17 Year
  Sex: Female

DRUGS (1)
  1. MIRENA [Suspect]
     Indication: ABDOMINAL PAIN LOWER
     Dosage: 20 MCG/24HR, CONT
     Route: 015
     Dates: start: 201208

REACTIONS (5)
  - Device dislocation [None]
  - Abdominal pain lower [None]
  - Menorrhagia [None]
  - Mood swings [None]
  - Off label use [None]
